FAERS Safety Report 6990772-4 (Version None)
Quarter: 2010Q3

REPORT INFORMATION
  Report Type: 
  Country: None (occurrence: None)
  Receive Date: 20100916
  Receipt Date: 20090817
  Transmission Date: 20110219
  Serious: Yes (Other)
  Sender: FDA-Public Use
  Company Number: HQWYE581628JUL05

PATIENT
  Sex: Female
  Weight: 70.37 kg

DRUGS (5)
  1. PREMARIN [Suspect]
     Indication: MENOPAUSAL SYMPTOMS
     Dosage: UNSPECIFIED
     Route: 048
     Dates: start: 19900101, end: 20001115
  2. ESTRADERM [Suspect]
  3. PROVERA [Suspect]
  4. MEDROXYPROGESTERONE ACETATE [Suspect]
  5. ESTRADIOL [Suspect]

REACTIONS (9)
  - BREAST CANCER [None]
  - BREAST CANCER IN SITU [None]
  - FATIGUE [None]
  - MUSCULOSKELETAL STIFFNESS [None]
  - MYALGIA [None]
  - OESTROGEN RECEPTOR ASSAY POSITIVE [None]
  - PROGESTERONE RECEPTOR ASSAY POSITIVE [None]
  - RIFT VALLEY FEVER [None]
  - SCAR [None]
